FAERS Safety Report 17799222 (Version 2)
Quarter: 2021Q3

REPORT INFORMATION
  Report Type: Other
  Country: US (occurrence: US)
  Receive Date: 20200518
  Receipt Date: 20210707
  Transmission Date: 20211014
  Serious: Yes (Other)
  Sender: FDA-Public Use
  Company Number: US-ROCHE-2597681

PATIENT
  Sex: Female
  Weight: 54.03 kg

DRUGS (2)
  1. RITUXAN [Suspect]
     Active Substance: RITUXIMAB
     Indication: MULTIPLE SCLEROSIS
     Route: 065
  2. OCREVUS [Suspect]
     Active Substance: OCRELIZUMAB
     Indication: SECONDARY PROGRESSIVE MULTIPLE SCLEROSIS
     Dosage: ONGOING YES?NEXT DOSE IN OCT?2017
     Route: 042
     Dates: start: 201709

REACTIONS (5)
  - Heart rate increased [Not Recovered/Not Resolved]
  - Off label use [Unknown]
  - Pneumonia [Recovered/Resolved]
  - Malaise [Unknown]
  - Atypical pneumonia [Unknown]

NARRATIVE: CASE EVENT DATE: 2018
